FAERS Safety Report 9893602 (Version 2)
Quarter: 2014Q1

REPORT INFORMATION
  Report Type: Report from Study
  Country: IT (occurrence: IT)
  Receive Date: 20140213
  Receipt Date: 20140213
  Transmission Date: 20141002
  Serious: Yes (Other)
  Sender: FDA-Public Use
  Company Number: IT-CELGENEUS-083-21880-11073188

PATIENT
  Sex: 0

DRUGS (3)
  1. REVLIMID [Suspect]
     Indication: CHRONIC LYMPHOCYTIC LEUKAEMIA
     Dosage: 5 MILLIGRAM
     Route: 048
  2. REVLIMID [Suspect]
     Dosage: INCREASE OF 5 MG DAILY
     Route: 048
  3. REVLIMID [Suspect]
     Dosage: 25 MILLIGRAM
     Route: 048

REACTIONS (10)
  - Immune thrombocytopenic purpura [Unknown]
  - Infection [Unknown]
  - Thrombocytopenia [Unknown]
  - Neutropenia [Unknown]
  - Anaemia [Unknown]
  - Febrile neutropenia [Unknown]
  - Cytomegalovirus infection [Unknown]
  - Rash [Unknown]
  - Pneumonia [Unknown]
  - Chronic lymphocytic leukaemia [Unknown]
